FAERS Safety Report 4923832-X (Version None)
Quarter: 2006Q1

REPORT INFORMATION
  Report Type: 
  Country: None (occurrence: None)
  Receive Date: 20060224
  Receipt Date: 20060224
  Transmission Date: 20060701
  Serious: Yes (Hospitalization)
  Sender: FDA-Public Use
  Company Number: None

PATIENT
  Age: 76 Year
  Sex: Female
  Weight: 68.4 kg

DRUGS (1)
  1. BETAPACE [Suspect]
     Indication: ATRIAL FIBRILLATION
     Dosage: 160 MG BID PO
     Route: 048

REACTIONS (11)
  - ATRIAL FIBRILLATION [None]
  - CARDIAC PACEMAKER REMOVAL [None]
  - CARDIO-RESPIRATORY ARREST [None]
  - DEVICE RELATED INFECTION [None]
  - ELECTROCARDIOGRAM QT CORRECTED INTERVAL PROLONGED [None]
  - ELECTROCARDIOGRAM ST SEGMENT ABNORMAL [None]
  - LOSS OF CONSCIOUSNESS [None]
  - RENAL FAILURE [None]
  - THERAPEUTIC AGENT TOXICITY [None]
  - TORSADE DE POINTES [None]
  - VENTRICULAR TACHYCARDIA [None]
